FAERS Safety Report 5836008-9 (Version None)
Quarter: 2008Q3

REPORT INFORMATION
  Report Type: 
  Country: None (occurrence: None)
  Receive Date: 20080806
  Receipt Date: 20080725
  Transmission Date: 20090109
  Serious: Yes (Other)
  Sender: FDA-Public Use
  Company Number: JP-PFIZER INC-2008062054

PATIENT
  Sex: Male

DRUGS (7)
  1. CHANTIX [Suspect]
     Indication: SMOKING CESSATION THERAPY
     Route: 048
     Dates: start: 20080625, end: 20080706
  2. URSO 250 [Concomitant]
     Indication: HEPATITIS C
     Route: 048
  3. OLMESARTAN MEDOXOMIL [Concomitant]
     Indication: HYPERTENSION
     Dosage: DAILY DOSE:20MG
     Route: 048
  4. ADALAT [Concomitant]
     Indication: HYPERTENSION
     Dosage: DAILY DOSE:40MG
     Route: 048
  5. CARDENALIN [Concomitant]
     Indication: HYPERTENSION
     Dosage: DAILY DOSE:2MG
     Route: 048
     Dates: start: 20080625, end: 20080709
  6. ALL OTHER THERAPEUTIC PRODUCTS [Concomitant]
     Route: 042
  7. DOXAZOSIN MESYLATE [Concomitant]
     Route: 048
     Dates: start: 20080709

REACTIONS (3)
  - BLOOD CREATININE INCREASED [None]
  - MALAISE [None]
  - RENAL IMPAIRMENT [None]
